FAERS Safety Report 8483072-7 (Version None)
Quarter: 2012Q2

REPORT INFORMATION
  Report Type: 
  Country: None (occurrence: None)
  Receive Date: 20120625
  Receipt Date: 20120612
  Transmission Date: 20120825
  Serious: Yes (Other)
  Sender: FDA-Public Use
  Company Number: 1320026

PATIENT
  Age: 54 Year
  Sex: Female
  Weight: 30.391 kg

DRUGS (2)
  1. VINCRISTINE SULFATE [Suspect]
     Indication: CHEMOTHERAPY
     Dosage: 2 MG MILLIGRAM(S), 21 DAY, INTRAVENOUS (NOT OTHERWISE SPECIFIED)
     Route: 042
     Dates: start: 20100713, end: 20101123
  2. (RITUXIMAB) [Suspect]
     Indication: B-CELL LYMPHOMA
     Dosage: 600 MG MILLIGRAM(S), 2 MONTH, INTRAVENOUS (NOT OTHERWISE SPECIFIED)
     Route: 042
     Dates: start: 20100713

REACTIONS (4)
  - TOXICITY TO VARIOUS AGENTS [None]
  - DIARRHOEA HAEMORRHAGIC [None]
  - ABDOMINAL PAIN [None]
  - COLITIS ISCHAEMIC [None]
